FAERS Safety Report 20302988 (Version 22)
Quarter: 2022Q4

REPORT INFORMATION
  Report Type: Report from Study
  Country: US (occurrence: US)
  Receive Date: 20220106
  Receipt Date: 20221116
  Transmission Date: 20230112
  Serious: Yes (Life-Threatening, Hospitalization, Other)
  Sender: FDA-Public Use
  Company Number: US-NOVARTISTESTPH-NVSC2022US001380

PATIENT
  Age: 6 Year
  Sex: Male
  Weight: 19.048 kg

DRUGS (14)
  1. TREPROSTINIL [Suspect]
     Active Substance: TREPROSTINIL
     Indication: Pulmonary arterial hypertension
     Dosage: 95 NG/KG/MIN, CONT (STRENGTH: 2.5MG/ML)
     Route: 058
     Dates: start: 20211206
  2. TREPROSTINIL [Suspect]
     Active Substance: TREPROSTINIL
     Dosage: 87 NG/KG/MIN, CONT (STRENGTH: 5MG/ML)
     Route: 058
     Dates: start: 20211206
  3. TREPROSTINIL [Suspect]
     Active Substance: TREPROSTINIL
     Dosage: 95 NG/KG/MIN, CONT (STRENGTH: 5MG/ ML)
     Route: 058
  4. TREPROSTINIL [Suspect]
     Active Substance: TREPROSTINIL
     Dosage: 95 NG/KG/MIN, CONT (STRENGTH: 5MG/ ML)
     Route: 058
  5. TREPROSTINIL [Suspect]
     Active Substance: TREPROSTINIL
     Dosage: 95 NG/KG/MIN, CONT, (STRENGTH: 2.5 MG/ML)
     Route: 058
  6. TREPROSTINIL [Suspect]
     Active Substance: TREPROSTINIL
     Dosage: 92 NG/KG/MIN, CONT (STRENGTH: 5MG/ML)
     Route: 058
     Dates: end: 20220122
  7. TREPROSTINIL [Suspect]
     Active Substance: TREPROSTINIL
     Dosage: UNK (DOSE INCREASED TO CONCENTRATION 5 MG/ML)
     Route: 058
  8. TREPROSTINIL [Suspect]
     Active Substance: TREPROSTINIL
     Dosage: 92 NG/KG/MIN, CONT (STRENGTH: 5 MG/ML)
     Route: 058
  9. TREPROSTINIL [Suspect]
     Active Substance: TREPROSTINIL
     Dosage: 92 NG/KG/MIN, CONT (STRENGTH: 25 MG/ML)
     Route: 058
  10. TREPROSTINIL [Suspect]
     Active Substance: TREPROSTINIL
     Dosage: 95 NG/KG/MIN, CONT (STRENGTH: 2.5MG/ML)
     Route: 058
     Dates: start: 20211206
  11. SILDENAFIL CITRATE [Concomitant]
     Active Substance: SILDENAFIL CITRATE
     Indication: Product used for unknown indication
     Dosage: UNK
     Route: 065
  12. AMBRISENTAN [Concomitant]
     Active Substance: AMBRISENTAN
     Indication: Product used for unknown indication
     Dosage: UNK, QD
     Route: 065
  13. TADALAFIL [Concomitant]
     Active Substance: TADALAFIL
     Indication: Product used for unknown indication
     Dosage: UNK, QD
     Route: 065
  14. TRACLEER [Concomitant]
     Active Substance: BOSENTAN
     Indication: Product used for unknown indication
     Dosage: UNK
     Route: 065

REACTIONS (23)
  - Loss of consciousness [Recovered/Resolved]
  - Syncope [Recovered/Resolved]
  - Injection site discharge [Recovered/Resolved]
  - Parainfluenzae virus infection [Recovered/Resolved]
  - Rhinovirus infection [Recovered/Resolved]
  - Hypoxia [Recovered/Resolved]
  - Product administration interrupted [Recovering/Resolving]
  - Injection site irritation [Recovered/Resolved]
  - Hypersensitivity [Unknown]
  - Rash [Unknown]
  - Skin discolouration [Unknown]
  - Palpitations [Unknown]
  - Injection site inflammation [Recovering/Resolving]
  - Injection site pruritus [Recovering/Resolving]
  - Injection site swelling [Unknown]
  - Injection site erythema [Recovering/Resolving]
  - Dyspnoea [Unknown]
  - Fatigue [Unknown]
  - Anal incontinence [Recovered/Resolved]
  - Musculoskeletal stiffness [Recovered/Resolved]
  - Hypotonia [Recovered/Resolved]
  - Vomiting [Recovered/Resolved]
  - Incorrect dose administered [Unknown]

NARRATIVE: CASE EVENT DATE: 20220103
